FAERS Safety Report 9153692 (Version 1)
Quarter: 2013Q1

REPORT INFORMATION
  Report Type: Spontaneous
  Country: US (occurrence: None)
  Receive Date: 20130307
  Receipt Date: 20130307
  Transmission Date: 20140127
  Serious: Yes (Death, Hospitalization)
  Sender: FDA-Public Use
  Company Number: SYM-2013-01002

PATIENT
  Sex: Male

DRUGS (1)
  1. EFUDEX [Suspect]
     Indication: ACTINIC KERATOSIS
     Dosage: 2 IN 1 D,
     Route: 061
     Dates: start: 201211

REACTIONS (5)
  - Rash generalised [None]
  - Mucous membrane disorder [None]
  - Hormone level abnormal [None]
  - Pneumonia [None]
  - Lung abscess [None]
